FAERS Safety Report 6190953-6 (Version None)
Quarter: 2009Q2

REPORT INFORMATION
  Report Type: 
  Country: None (occurrence: None)
  Receive Date: 20090513
  Receipt Date: 20090505
  Transmission Date: 20091009
  Serious: Yes (Other)
  Sender: FDA-Public Use
  Company Number: FRP09000513

PATIENT
  Age: 65 Year
  Sex: Female

DRUGS (4)
  1. ACTONEL [Suspect]
     Indication: OSTEOPENIA
     Dosage: 35 MG, 1 /WEEK, ORAL
     Route: 048
     Dates: start: 20080710, end: 20090302
  2. FEMARA [Suspect]
     Dates: start: 20080710, end: 20090302
  3. LEVOTHYROXINE SODIUM [Concomitant]
  4. TAXOTERE [Concomitant]

REACTIONS (1)
  - HYPERTRICHOSIS [None]
